FAERS Safety Report 18282417 (Version 1)
Quarter: 2020Q3

REPORT INFORMATION
  Report Type: Spontaneous
  Country: US (occurrence: US)
  Receive Date: 20200918
  Receipt Date: 20200918
  Transmission Date: 20201103
  Serious: Yes (Other)
  Sender: FDA-Public Use
  Company Number: US-PFIZER INC-2019237509

PATIENT
  Age: 19 Year
  Sex: Female

DRUGS (4)
  1. RAPAMUNE [Suspect]
     Active Substance: SIROLIMUS
     Indication: TRANSPLANT REJECTION
     Dosage: 2X/DAY
  2. RAPAMUNE [Suspect]
     Active Substance: SIROLIMUS
     Indication: PROPHYLAXIS AGAINST GRAFT VERSUS HOST DISEASE
     Dosage: 2 MG, DAILY
  3. VORICONAZOLE. [Concomitant]
     Active Substance: VORICONAZOLE
     Indication: ANTIFUNGAL PROPHYLAXIS
     Dosage: 400 MG, 2X/DAY
  4. RAPAMUNE [Suspect]
     Active Substance: SIROLIMUS
     Dosage: 4.5 MG, DAILY

REACTIONS (2)
  - Immunosuppressant drug level increased [Recovering/Resolving]
  - Inappropriate schedule of product administration [Unknown]
